FAERS Safety Report 7327781-1 (Version None)
Quarter: 2011Q1

REPORT INFORMATION
  Report Type: 
  Country: None (occurrence: None)
  Receive Date: 20110224
  Receipt Date: 20110224
  Transmission Date: 20110831
  Serious: No
  Sender: FDA-Public Use
  Company Number: None

PATIENT
  Age: 57 Year
  Sex: Female

DRUGS (3)
  1. VANCOMYCIN [Suspect]
     Dates: start: 20091031, end: 20091109
  2. VANCOMYCIN [Suspect]
     Dates: start: 20090908, end: 20090912
  3. CIPROFLOXACIN [Suspect]
     Dates: start: 20090911, end: 20091106

REACTIONS (5)
  - LIVER DISORDER [None]
  - VOMITING [None]
  - FOOD INTOLERANCE [None]
  - ABDOMINAL DISCOMFORT [None]
  - NAUSEA [None]
